FAERS Safety Report 4883816-7 (Version None)
Quarter: 2006Q1

REPORT INFORMATION
  Report Type: 
  Country: None (occurrence: None)
  Receive Date: 20060117
  Receipt Date: 20060117
  Transmission Date: 20060701
  Serious: Yes (Hospitalization)
  Sender: FDA-Public Use
  Company Number: None

PATIENT
  Age: 80 Year
  Sex: Female
  Weight: 46 kg

DRUGS (5)
  1. VYTORIN [Suspect]
     Indication: HYPERCHOLESTEROLAEMIA
     Dosage: 10/80MG NIGHTLY PO
     Route: 048
  2. CLONIDINE [Concomitant]
  3. DETROL LA [Concomitant]
  4. PREVACID [Concomitant]
  5. TIAZAC [Concomitant]

REACTIONS (6)
  - ABASIA [None]
  - ABDOMINAL PAIN [None]
  - ASTHENIA [None]
  - MYALGIA [None]
  - PAIN [None]
  - RENAL FAILURE ACUTE [None]
